FAERS Safety Report 4960673-1 (Version None)
Quarter: 2006Q2

REPORT INFORMATION
  Report Type: 
  Country: None (occurrence: None)
  Receive Date: 20060403
  Receipt Date: 20051215
  Transmission Date: 20061013
  Serious: Yes (Hospitalization)
  Sender: FDA-Public Use
  Company Number: US-MERCK-0512USA02575

PATIENT
  Age: 59 Year
  Sex: Male
  Weight: 120 kg

DRUGS (8)
  1. VIOXX [Suspect]
     Indication: ARTHRALGIA
     Route: 048
     Dates: start: 20021126, end: 20030106
  2. ASPIRIN [Concomitant]
     Indication: CEREBROVASCULAR ACCIDENT PROPHYLAXIS
     Route: 065
     Dates: start: 19900101, end: 20021202
  3. CARDURA [Concomitant]
     Indication: HYPERTENSION
     Route: 065
     Dates: start: 19900101
  4. ATENOLOL [Concomitant]
     Indication: HYPERTENSION
     Route: 065
     Dates: start: 20000731
  5. MAXZIDE [Concomitant]
     Indication: HYPERTENSION
     Route: 065
     Dates: start: 19900101
  6. ZETIA [Concomitant]
     Indication: BLOOD CHOLESTEROL INCREASED
     Route: 065
     Dates: start: 20021124, end: 20030524
  7. NIACIN [Concomitant]
     Indication: BLOOD CHOLESTEROL INCREASED
     Route: 065
     Dates: start: 20001001
  8. VITAMIN B (UNSPECIFIED) [Concomitant]
     Route: 065

REACTIONS (1)
  - CEREBROVASCULAR ACCIDENT [None]
